FAERS Safety Report 7814998-2 (Version None)
Quarter: 2011Q4

REPORT INFORMATION
  Report Type: 
  Country: None (occurrence: None)
  Receive Date: 20111014
  Receipt Date: 20111011
  Transmission Date: 20120403
  Serious: Yes (Death)
  Sender: FDA-Public Use
  Company Number: US-GLAXOSMITHKLINE-A0948997A

PATIENT
  Age: 89 Year
  Sex: Male
  Weight: 54.2 kg

DRUGS (6)
  1. CALCIUM+VITAMIN D [Concomitant]
     Route: 048
  2. PAZOPANIB [Suspect]
     Indication: TRANSITIONAL CELL CANCER OF THE RENAL PELVIS AND URETER
     Dosage: 800MG PER DAY
     Route: 048
     Dates: start: 20110419, end: 20111004
  3. PREDNISOLONE ACETATE [Concomitant]
     Dosage: 1DROP TWICE PER DAY
     Route: 047
  4. PACLITAXEL [Suspect]
     Indication: TRANSITIONAL CELL CANCER OF THE RENAL PELVIS AND URETER
     Dosage: 80MGM2 CYCLIC
     Dates: start: 20110419, end: 20110922
  5. LOVENOX [Concomitant]
     Indication: DEEP VEIN THROMBOSIS
     Dosage: 60MG TWICE PER DAY
     Route: 058
  6. COREG [Concomitant]
     Dosage: 6.25MG TWICE PER DAY
     Route: 048

REACTIONS (10)
  - BLOOD CREATININE INCREASED [None]
  - GLOMERULAR FILTRATION RATE DECREASED [None]
  - FATIGUE [None]
  - BLOOD ALKALINE PHOSPHATASE INCREASED [None]
  - MEMORY IMPAIRMENT [None]
  - PLATELET COUNT DECREASED [None]
  - BLOOD POTASSIUM INCREASED [None]
  - DEATH [None]
  - ASPARTATE AMINOTRANSFERASE INCREASED [None]
  - HAEMOGLOBIN DECREASED [None]
